FAERS Safety Report 17359763 (Version 1)
Quarter: 2020Q1

REPORT INFORMATION
  Report Type: Spontaneous
  Country: DE (occurrence: DE)
  Receive Date: 20200203
  Receipt Date: 20200203
  Transmission Date: 20200409
  Serious: Yes (Death, Other)
  Sender: FDA-Public Use
  Company Number: DE-TEVA-2020-DE-1177713

PATIENT
  Age: 46 Year
  Sex: Male

DRUGS (2)
  1. DOCETAXEL. [Suspect]
     Active Substance: DOCETAXEL
     Indication: ADENOCARCINOMA
     Dosage: 75 MG/M2 D1 QW3
     Route: 065
     Dates: start: 20181120, end: 20181211
  2. VARGATEF [Suspect]
     Active Substance: NINTEDANIB
     Indication: ADENOCARCINOMA
     Dosage: 1 CYCLE
     Route: 048
     Dates: start: 20181120, end: 20181211

REACTIONS (3)
  - Death [Fatal]
  - Malignant neoplasm progression [Fatal]
  - Haemoptysis [Fatal]

NARRATIVE: CASE EVENT DATE: 20190213
